FAERS Safety Report 7573366-1 (Version None)
Quarter: 2011Q2

REPORT INFORMATION
  Report Type: 
  Country: None (occurrence: None)
  Receive Date: 20110627
  Receipt Date: 20110621
  Transmission Date: 20111010
  Serious: No
  Sender: FDA-Public Use
  Company Number: PHHY2011US51556

PATIENT
  Sex: Female

DRUGS (6)
  1. CALCIUM CARBONATE [Concomitant]
  2. CLARITIN [Concomitant]
     Indication: RHINITIS ALLERGIC
     Dosage: 10 MG, QD
  3. IBUPROFEN [Concomitant]
     Indication: PAIN
  4. ZOFRAN [Concomitant]
     Indication: NAUSEA
     Dosage: 8 MG, QD
  5. TASIGNA [Suspect]
     Indication: CHRONIC MYELOID LEUKAEMIA
     Dosage: 400 MG, BID
     Route: 048
     Dates: start: 20110512, end: 20110608
  6. HYDROCHLOROTHIAZIDE [Concomitant]
     Dosage: 25 MG, QD

REACTIONS (5)
  - NAUSEA [None]
  - HEADACHE [None]
  - RASH [None]
  - PAIN [None]
  - CONSTIPATION [None]
